FAERS Safety Report 7331274-5 (Version None)
Quarter: 2011Q1

REPORT INFORMATION
  Report Type: 
  Country: None (occurrence: None)
  Receive Date: 20110304
  Receipt Date: 20110224
  Transmission Date: 20110831
  Serious: Yes (Death)
  Sender: FDA-Public Use
  Company Number: US-GENZYME-FLUD-1000756

PATIENT

DRUGS (5)
  1. FLUDARA [Suspect]
     Indication: SURGICAL PRECONDITIONING
     Dosage: 40 MG/M2, INFUSED OVER 30 MINUTES ON DAYS -6 TO -3
     Route: 042
  2. RITUXIMAB [Suspect]
     Indication: STEM CELL TRANSPLANT
     Dosage: 375 MG/M2, ON DAYS +1 AND +8
     Route: 065
  3. THYMOGLOBULIN [Suspect]
     Indication: SURGICAL PRECONDITIONING
     Dosage: UNK UNK, UNK
     Route: 042
  4. TACROLIMUS [Concomitant]
     Indication: PROPHYLAXIS AGAINST GRAFT VERSUS HOST DISEASE
  5. BUSULFAN [Suspect]
     Indication: SURGICAL PRECONDITIONING
     Dosage: 75 TO 170 MG/M2, OVER 4 HOURS QD ON DAYS -6 TO -3
     Route: 042

REACTIONS (1)
  - DISEASE RECURRENCE [None]
